FAERS Safety Report 10050637 (Version 1)
Quarter: 2014Q2

REPORT INFORMATION
  Report Type: Spontaneous
  Country: US (occurrence: US)
  Receive Date: 20140401
  Receipt Date: 20140401
  Transmission Date: 20141212
  Serious: No
  Sender: FDA-Public Use
  Company Number: US-ASTRAZENECA-2013SE51702

PATIENT
  Age: 81 Year
  Sex: Male
  Weight: 97.5 kg

DRUGS (8)
  1. NEXIUM [Suspect]
     Indication: GASTROOESOPHAGEAL REFLUX DISEASE
     Route: 048
  2. NEXIUM [Suspect]
     Indication: GASTROOESOPHAGEAL REFLUX DISEASE
     Route: 048
     Dates: end: 201303
  3. TOPROL  XL [Suspect]
     Indication: HEART RATE IRREGULAR
     Route: 048
     Dates: start: 2000
  4. TOPROL  XL [Suspect]
     Indication: HEART RATE IRREGULAR
     Route: 048
     Dates: start: 2000
  5. TOPROL  XL [Suspect]
     Indication: HEART RATE IRREGULAR
     Route: 048
     Dates: start: 2000
  6. TOPROL  XL [Suspect]
     Indication: HEART RATE IRREGULAR
     Route: 048
     Dates: start: 2000
  7. PROSTATE MEDICATION [Concomitant]
  8. BLOOD PRESSSURE MEDICATION [Concomitant]

REACTIONS (8)
  - Throat irritation [Not Recovered/Not Resolved]
  - Burning sensation [Unknown]
  - Dyspepsia [Unknown]
  - Heart rate irregular [Unknown]
  - Heart rate increased [Unknown]
  - Eructation [Unknown]
  - Intentional product misuse [Unknown]
  - Drug dose omission [Unknown]
